FAERS Safety Report 7824334-3 (Version None)
Quarter: 2011Q4

REPORT INFORMATION
  Report Type: 
  Country: None (occurrence: None)
  Receive Date: 20111019
  Receipt Date: 20111014
  Transmission Date: 20120403
  Serious: Yes (Death, Hospitalization, Other)
  Sender: FDA-Public Use
  Company Number: US-BRISTOL-MYERS SQUIBB COMPANY-14216303

PATIENT
  Age: 88 Year
  Sex: Male

DRUGS (6)
  1. UROXATRAL [Concomitant]
  2. IPILIMUMAB [Suspect]
     Indication: MALIGNANT MELANOMA
     Route: 042
     Dates: start: 20071130, end: 20080519
  3. AVODART [Concomitant]
     Route: 048
  4. PREDNISONE [Concomitant]
     Route: 048
     Dates: end: 20080521
  5. ANDROGEL [Concomitant]
     Dosage: DOSAGE FORM = INJECTION
     Dates: end: 20080521
  6. LEVOTHYROXINE SODIUM [Concomitant]
     Dosage: 1 TABLET DAILY

REACTIONS (4)
  - PNEUMONIA [None]
  - URINARY TRACT INFECTION [None]
  - VENTRICULAR TACHYCARDIA [None]
  - PROCTITIS [None]
